FAERS Safety Report 6068549-6 (Version None)
Quarter: 2009Q1

REPORT INFORMATION
  Report Type: 
  Country: None (occurrence: None)
  Receive Date: 20090206
  Receipt Date: 20090129
  Transmission Date: 20090719
  Serious: Yes (Other)
  Sender: FDA-Public Use
  Company Number: US-AVENTIS-200910350GDDC

PATIENT
  Age: 46 Year
  Sex: Male
  Weight: 104.2 kg

DRUGS (19)
  1. TAXOTERE [Suspect]
     Route: 042
     Dates: start: 20080514, end: 20080827
  2. BEVACIZUMAB [Suspect]
     Route: 042
     Dates: start: 20080514, end: 20080806
  3. AMBIEN [Concomitant]
     Indication: INSOMNIA
     Dates: start: 20080716
  4. FISH OIL [Concomitant]
     Route: 048
     Dates: start: 20080507
  5. ASCORBIC ACID [Concomitant]
     Route: 048
     Dates: start: 20080507
  6. ZOLOFT [Concomitant]
     Route: 048
     Dates: start: 20080806
  7. CELEBREX [Concomitant]
     Route: 048
     Dates: start: 20081215, end: 20090108
  8. CELEXA [Concomitant]
     Dates: start: 20081201
  9. BACITRACIN [Concomitant]
     Route: 061
     Dates: start: 20081021, end: 20081230
  10. CIPROFLOXACIN [Concomitant]
     Route: 048
     Dates: start: 20081021, end: 20081230
  11. COLACE [Concomitant]
     Dates: start: 20080716
  12. COLACE [Concomitant]
     Route: 048
     Dates: start: 20081021, end: 20081230
  13. COMPAZINE [Concomitant]
     Indication: NAUSEA
     Dosage: DOSE: 10 Q6H
     Route: 048
     Dates: start: 20080827, end: 20081230
  14. DECADRON [Concomitant]
     Dosage: DOSE: 8 TAKE 12 HOURS AND 1 HOUR PRIOR TO CHEMO AND 12 HOURS AFTER CHEMO
     Route: 048
     Dates: start: 20080428, end: 20081230
  15. IBUPROFEN TABLETS [Concomitant]
     Route: 048
     Dates: start: 20080716, end: 20081230
  16. LIDOCAINE [Concomitant]
     Route: 061
     Dates: start: 20080827, end: 20081230
  17. NYSTATIN [Concomitant]
     Dosage: DOSE: 500000 QID
     Route: 048
     Dates: start: 20080827, end: 20081230
  18. OXYCODONE HCL [Concomitant]
     Indication: PAIN
     Dosage: DOSE: 5-10 Q4H
     Route: 048
     Dates: start: 20081021, end: 20081230
  19. PEPCID [Concomitant]
     Route: 048
     Dates: start: 20080716, end: 20081230

REACTIONS (1)
  - RETINAL VASCULAR OCCLUSION [None]
